FAERS Safety Report 18765865 (Version 2)
Quarter: 2021Q2

REPORT INFORMATION
  Report Type: Spontaneous
  Country: US (occurrence: US)
  Receive Date: 20210121
  Receipt Date: 20210519
  Transmission Date: 20210717
  Serious: No
  Sender: FDA-Public Use
  Company Number: US-BRISTOL-MYERS SQUIBB COMPANY-BMS-2021-005062

PATIENT
  Age: 81 Year
  Sex: Female

DRUGS (2)
  1. SPRYCEL [Suspect]
     Active Substance: DASATINIB
     Dosage: 70 MILLIGRAM, QD
     Route: 048
     Dates: start: 20141007
  2. SPRYCEL [Suspect]
     Active Substance: DASATINIB
     Indication: CHRONIC LEUKAEMIA
     Dosage: 70MG; ONE TABLET DAILY FOR TWO DAYS ON AND ONE DAY OFF
     Route: 048
     Dates: start: 20141007

REACTIONS (3)
  - Nasopharyngitis [Unknown]
  - Full blood count increased [Unknown]
  - Off label use [Unknown]

NARRATIVE: CASE EVENT DATE: 202012
